FAERS Safety Report 10183148 (Version 1)
Quarter: 2014Q2

REPORT INFORMATION
  Report Type: Spontaneous
  Country: PL (occurrence: PL)
  Receive Date: 20140520
  Receipt Date: 20140520
  Transmission Date: 20141212
  Serious: Yes (Death)
  Sender: FDA-Public Use
  Company Number: PL-SA-2014SA060447

PATIENT
  Age: 61 Year
  Sex: Female
  Weight: 58 kg

DRUGS (3)
  1. CEREZYME [Suspect]
     Indication: GAUCHER^S DISEASE
     Route: 042
     Dates: start: 2000, end: 201403
  2. NEBIVOLOL [Concomitant]
     Indication: HYPERTENSION
     Route: 048
     Dates: end: 201403
  3. AMLODIPINE BESILATE/PERINDOPRIL ERBUMINE [Concomitant]
     Indication: HYPERTENSION
     Dosage: DOSE: 4.5 MG/5 MG
     Route: 048
     Dates: end: 201403

REACTIONS (1)
  - Neoplasm [Fatal]
